FAERS Safety Report 9962758 (Version 1)
Quarter: 2014Q1

REPORT INFORMATION
  Report Type: Report from Study
  Country: US (occurrence: US)
  Receive Date: 20140305
  Receipt Date: 20140305
  Transmission Date: 20141002
  Serious: No
  Sender: FDA-Public Use
  Company Number: US-ABBVIE-13P-163-1112266-00

PATIENT
  Sex: Female

DRUGS (2)
  1. HUMIRA [Suspect]
     Indication: CROHN^S DISEASE
     Dates: start: 201209, end: 20130310
  2. HUMIRA [Suspect]
     Dates: start: 20130310

REACTIONS (3)
  - Treatment noncompliance [Unknown]
  - Abdominal pain upper [Not Recovered/Not Resolved]
  - Crohn^s disease [Unknown]
